FAERS Safety Report 9354181 (Version 1)
Quarter: 2013Q2

REPORT INFORMATION
  Report Type: Spontaneous
  Country: SE (occurrence: SE)
  Receive Date: 20130618
  Receipt Date: 20130618
  Transmission Date: 20140414
  Serious: Yes (Other)
  Sender: FDA-Public Use
  Company Number: SE-GLAXOSMITHKLINE-B0899369A

PATIENT
  Age: 21 Year
  Sex: Male

DRUGS (1)
  1. PAROXETINE [Suspect]
     Dosage: 20MG PER DAY
     Route: 065

REACTIONS (8)
  - Suicidal ideation [Unknown]
  - Personality disorder [Unknown]
  - Post-traumatic stress disorder [Unknown]
  - Anger [Unknown]
  - Stress [Unknown]
  - Lethargy [Unknown]
  - Hostility [Unknown]
  - Emotional disorder [Unknown]
